FAERS Safety Report 4530470-X (Version None)
Quarter: 2004Q4

REPORT INFORMATION
  Report Type: 
  Country: None (occurrence: None)
  Receive Date: 20041216
  Receipt Date: 20041207
  Transmission Date: 20050328
  Serious: Yes (Life-Threatening, Hospitalization)
  Sender: FDA-Public Use
  Company Number: HQWYE788207DEC04

PATIENT
  Age: 78 Year
  Sex: Female

DRUGS (1)
  1. PROPRANOLOL HYDROCHLORIDE [Suspect]
     Dosage: ORAL
     Route: 048
     Dates: end: 20040101

REACTIONS (7)
  - ACUTE RESPIRATORY DISTRESS SYNDROME [None]
  - ALVEOLITIS ALLERGIC [None]
  - DEEP VEIN THROMBOSIS [None]
  - LUNG DISORDER [None]
  - NOSOCOMIAL INFECTION [None]
  - PNEUMOTHORAX [None]
  - STREPTOCOCCAL SEPSIS [None]
